FAERS Safety Report 10491405 (Version 1)
Quarter: 2014Q4

REPORT INFORMATION
  Report Type: Spontaneous
  Country: US (occurrence: US)
  Receive Date: 20141002
  Receipt Date: 20141002
  Transmission Date: 20150528
  Serious: No
  Sender: FDA-Public Use
  Company Number: US-GLAXOSMITHKLINE-A1052478A

PATIENT
  Age: 48 Year
  Sex: Male

DRUGS (8)
  1. LISINOPRIL. [Concomitant]
     Active Substance: LISINOPRIL
  2. PROTONIX [Concomitant]
     Active Substance: PANTOPRAZOLE SODIUM
  3. ADVAIR HFA [Suspect]
     Active Substance: FLUTICASONE PROPIONATE\SALMETEROL XINAFOATE
     Indication: PHARYNGEAL OEDEMA
     Dosage: 2PUFF TWICE PER DAY
     Route: 055
     Dates: start: 20131114
  4. VITAMIN A [Concomitant]
     Active Substance: VITAMIN A
  5. COUMADIN [Concomitant]
     Active Substance: WARFARIN SODIUM
  6. CARAFATE [Concomitant]
     Active Substance: SUCRALFATE
  7. RANITIDINE [Concomitant]
     Active Substance: RANITIDINE\RANITIDINE HYDROCHLORIDE
  8. HYDROCODONE [Concomitant]
     Active Substance: HYDROCODONE

REACTIONS (1)
  - Tremor [Recovering/Resolving]

NARRATIVE: CASE EVENT DATE: 20131117
